FAERS Safety Report 25277345 (Version 2)
Quarter: 2025Q2

REPORT INFORMATION
  Report Type: Spontaneous
  Country: US (occurrence: US)
  Receive Date: 20250507
  Receipt Date: 20250618
  Transmission Date: 20250716
  Serious: Yes (Other)
  Sender: HIKMA
  Company Number: US-HIKMA PHARMACEUTICALS USA INC.-US-H14001-25-03877

PATIENT
  Age: 42 Year
  Sex: Male

DRUGS (1)
  1. TESTOSTERONE ENANTHATE [Suspect]
     Active Substance: TESTOSTERONE ENANTHATE
     Indication: Blood testosterone decreased
     Dosage: 0.4 MILLILITER, BIW
     Route: 030
     Dates: start: 20250217, end: 20250220

REACTIONS (4)
  - Infection [Not Recovered/Not Resolved]
  - Surgery [Unknown]
  - Lymphadenopathy [Not Recovered/Not Resolved]
  - Poor quality product administered [Unknown]

NARRATIVE: CASE EVENT DATE: 20250221
